FAERS Safety Report 11079045 (Version 2)
Quarter: 2015Q2

REPORT INFORMATION
  Report Type: Spontaneous
  Country: US (occurrence: US)
  Receive Date: 20150430
  Receipt Date: 20150509
  Transmission Date: 20150821
  Serious: Yes (Hospitalization, Other)
  Sender: FDA-Public Use
  Company Number: US-JNJFOC-20150415466

PATIENT
  Age: 77 Year
  Sex: Male
  Weight: 82.1 kg

DRUGS (15)
  1. MOTRIN IB [Suspect]
     Active Substance: IBUPROFEN
     Indication: NERVOUS SYSTEM DISORDER
     Route: 048
  2. RAMIPRIL. [Concomitant]
     Active Substance: RAMIPRIL
     Indication: HYPERTENSION
     Dosage: INTERVAL: 8 YEARS
     Route: 065
  3. ALLOPURINOL. [Concomitant]
     Active Substance: ALLOPURINOL
     Indication: GOUT
     Dosage: 24 YEARS
     Route: 065
     Dates: start: 1991
  4. MOTRIN IB [Suspect]
     Active Substance: IBUPROFEN
     Indication: MUSCULAR WEAKNESS
     Route: 048
     Dates: end: 20150214
  5. MOTRIN IB [Suspect]
     Active Substance: IBUPROFEN
     Indication: PAIN
     Route: 048
  6. VITAMIN E [Concomitant]
     Active Substance: .ALPHA.-TOCOPHEROL
     Indication: PRODUCT USED FOR UNKNOWN INDICATION
     Route: 065
  7. MOTRIN IB [Suspect]
     Active Substance: IBUPROFEN
     Indication: MUSCLE SPASMS
     Route: 048
     Dates: end: 20150214
  8. MOTRIN IB [Suspect]
     Active Substance: IBUPROFEN
     Indication: MUSCLE SPASMS
     Route: 048
  9. MOTRIN IB [Suspect]
     Active Substance: IBUPROFEN
     Indication: PAIN
     Route: 048
     Dates: end: 20150214
  10. LEVOTHYROXINE [Concomitant]
     Active Substance: LEVOTHYROXINE
     Indication: HYPOTHYROIDISM
     Dosage: INTERVAL: 20 YEARS
     Route: 065
     Dates: start: 1995
  11. DIAZEPAM. [Concomitant]
     Active Substance: DIAZEPAM
     Indication: MUSCLE SPASMS
     Dosage: 2MG, ? TAB, 3X DAILY
     Route: 065
  12. DRUGS USED IN BENIGN PROSTATIC HYPERTROPHY [Concomitant]
     Indication: BENIGN PROSTATIC HYPERPLASIA
     Dosage: INTERVAL: 13 YEARS
     Route: 065
     Dates: start: 2002
  13. MOTRIN IB [Suspect]
     Active Substance: IBUPROFEN
     Indication: NERVOUS SYSTEM DISORDER
     Route: 048
     Dates: end: 20150214
  14. MOTRIN IB [Suspect]
     Active Substance: IBUPROFEN
     Indication: MUSCULAR WEAKNESS
     Route: 048
  15. FISH OIL [Concomitant]
     Active Substance: FISH OIL
     Indication: PRODUCT USED FOR UNKNOWN INDICATION
     Route: 065

REACTIONS (4)
  - Product use issue [Unknown]
  - Cerebral haemorrhage [Recovering/Resolving]
  - Abdominal hernia [Recovering/Resolving]
  - Muscle atrophy [Recovering/Resolving]

NARRATIVE: CASE EVENT DATE: 20150214
